FAERS Safety Report 15616092 (Version 1)
Quarter: 2018Q4

REPORT INFORMATION
  Report Type: Spontaneous
  Country: US (occurrence: US)
  Receive Date: 20181114
  Receipt Date: 20181114
  Transmission Date: 20190205
  Serious: Yes (Life-Threatening, Other)
  Sender: FDA-Public Use
  Company Number: US-TEVA-2018-US-974278

PATIENT
  Sex: Male

DRUGS (3)
  1. HEPARIN [Suspect]
     Active Substance: HEPARIN SODIUM
     Dosage: 5000 UNITS ADMINISTERED THROUGH A CATHETER; FOLLOWED BY FLUSHES OF 5000 UNITS/ML; ROUTE OF ADMINI...
     Route: 050
  2. MELPHALAN HYDROCHLORIDE. [Suspect]
     Active Substance: MELPHALAN HYDROCHLORIDE
     Indication: PLASMA CELL MYELOMA
     Route: 065
  3. CITRATE DEXTROSE SOLUTION A [Concomitant]
     Route: 065

REACTIONS (3)
  - Peripheral artery thrombosis [Unknown]
  - Arterial thrombosis [Unknown]
  - Heparin-induced thrombocytopenia [Recovered/Resolved]
